FAERS Safety Report 4717785-7 (Version None)
Quarter: 2005Q3

REPORT INFORMATION
  Report Type: 
  Country: None (occurrence: None)
  Receive Date: 20050715
  Receipt Date: 20050315
  Transmission Date: 20060218
  Serious: Yes (Other)
  Sender: FDA-Public Use
  Company Number: 2004-00473

PATIENT
  Age: 61 Year
  Sex: Male
  Weight: 93.9 kg

DRUGS (3)
  1. INTEGRILIN [Suspect]
     Indication: CORONARY ANGIOPLASTY
     Dosage: 115.00 MG, INTRAVENOUS
     Route: 042
     Dates: start: 20040905, end: 20040905
  2. HEPARIN [Concomitant]
  3. ASPIRIN [Concomitant]

REACTIONS (5)
  - HAEMATURIA [None]
  - INFUSION SITE BRUISING [None]
  - INJECTION SITE HAEMORRHAGE [None]
  - MELAENA [None]
  - THROMBOCYTOPENIA [None]
